FAERS Safety Report 7438470-7 (Version None)
Quarter: 2011Q2

REPORT INFORMATION
  Report Type: 
  Country: None (occurrence: None)
  Receive Date: 20110426
  Receipt Date: 20110419
  Transmission Date: 20111010
  Serious: Yes (Hospitalization, Other)
  Sender: FDA-Public Use
  Company Number: CHPA2011US05641

PATIENT
  Age: 37 Year
  Sex: Female
  Weight: 61.224 kg

DRUGS (6)
  1. KEPPRA [Concomitant]
     Indication: EPILEPSY
     Dosage: 1500 MG QAM, 1000 MG EVERY AFTERNOON
     Route: 048
  2. NEURONTIN [Concomitant]
     Indication: EPILEPSY
     Dosage: 1200 MG, BID
     Route: 048
  3. LAMICTAL [Concomitant]
     Indication: EPILEPSY
     Dosage: 300 MG QAM, 200 MG EVERY AFTERNOON
     Route: 048
  4. IBUPROFEN [Suspect]
     Indication: MIGRAINE
     Dosage: 2 DF, Q8H
     Route: 048
  5. EXCEDRIN (MIGRAINE) [Suspect]
     Indication: MIGRAINE
     Dosage: UNK, UNK
     Route: 048
     Dates: start: 20070101
  6. EXCEDRIN (MIGRAINE) [Suspect]
     Dosage: 2 DF, Q8H
     Route: 048
     Dates: start: 20101001, end: 20101001

REACTIONS (12)
  - HAEMATEMESIS [None]
  - ABDOMINAL PAIN UPPER [None]
  - DYSPNOEA [None]
  - GAIT DISTURBANCE [None]
  - OVERDOSE [None]
  - GRAND MAL CONVULSION [None]
  - FAECES DISCOLOURED [None]
  - HAEMOGLOBIN DECREASED [None]
  - HAEMOPTYSIS [None]
  - GASTRIC ULCER HAEMORRHAGE [None]
  - FAECAL INCONTINENCE [None]
  - SKIN DISCOLOURATION [None]
